FAERS Safety Report 15403552 (Version 1)
Quarter: 2018Q3

REPORT INFORMATION
  Report Type: Spontaneous
  Country: GB (occurrence: GB)
  Receive Date: 20180919
  Receipt Date: 20180919
  Transmission Date: 20181010
  Serious: Yes (Other)
  Sender: FDA-Public Use
  Company Number: GB-TEVA-2018-GB-956074

PATIENT
  Age: 64 Year
  Sex: Male
  Weight: 76 kg

DRUGS (26)
  1. SALBUTAMOL [Concomitant]
     Active Substance: ALBUTEROL
     Route: 055
     Dates: start: 20170120
  2. FLUCLOXACILLIN [Concomitant]
     Active Substance: FLUCLOXACILLIN
     Dosage: 4 DOSAGE FORMS DAILY;
     Dates: start: 20180806, end: 20180813
  3. DOXYCYCLINE. [Concomitant]
     Active Substance: DOXYCYCLINE
     Dosage: TWO NOW THEN ONE DAILY.
     Route: 065
     Dates: start: 20180713, end: 20180720
  4. SODIUM CHLORIDE. [Concomitant]
     Active Substance: SODIUM CHLORIDE
     Dosage: USE AS DIRECTED.
     Route: 065
     Dates: start: 20170120
  5. VENTOLIN [Concomitant]
     Active Substance: ALBUTEROL SULFATE
     Route: 055
     Dates: start: 20170120
  6. HUMULIN M3 [Concomitant]
     Active Substance: INSULIN HUMAN
     Dosage: USE AS DIRECTED.
     Route: 065
     Dates: start: 20170120
  7. METFORMIN [Concomitant]
     Active Substance: METFORMIN HYDROCHLORIDE
     Dosage: 4 DOSAGE FORMS DAILY;
     Route: 065
     Dates: start: 20170120
  8. IPRATROPIUM BROMIDE. [Concomitant]
     Active Substance: IPRATROPIUM BROMIDE
     Dosage: USE THREE TIMES DAILY.
     Dates: start: 20170120, end: 20180802
  9. RAMIPRIL. [Concomitant]
     Active Substance: RAMIPRIL
     Dosage: 1 DOSAGE FORMS DAILY;
     Dates: start: 20170120
  10. MATRIFEN [Concomitant]
     Active Substance: FENTANYL
     Dosage: (FENTANYL) APPLY.
     Dates: start: 20170905
  11. FENTANYL. [Concomitant]
     Active Substance: FENTANYL
     Dosage: APPLY
     Route: 065
     Dates: start: 20180726
  12. SPIRONOLACTONE. [Concomitant]
     Active Substance: SPIRONOLACTONE
     Indication: OEDEMA PERIPHERAL
     Dosage: TAKE ONE OR TWO DEPENDING LEG OEDEMA.
     Route: 065
     Dates: start: 20170120
  13. FOLIC ACID. [Suspect]
     Active Substance: FOLIC ACID
     Dates: start: 20180725, end: 20180822
  14. PREDNISOLONE. [Concomitant]
     Active Substance: PREDNISOLONE
     Dosage: 2 DOSAGE FORMS DAILY;
     Dates: start: 20170120
  15. GLYCERYL TRINITRATE [Concomitant]
     Active Substance: NITROGLYCERIN
     Dosage: PUFF
     Route: 065
     Dates: start: 20180723, end: 20180820
  16. GABAPENTIN. [Concomitant]
     Active Substance: GABAPENTIN
     Dosage: USE AS DIRECTED.
     Route: 065
     Dates: start: 20170905
  17. AZITHROMYCIN ANHYDROUS. [Concomitant]
     Active Substance: AZITHROMYCIN ANHYDROUS
     Dosage: 3 DOSAGE FORMS DAILY; MONDAY, WEDNESDAY AND FRIDAY
     Dates: start: 20180226
  18. ACETYLSALICYLIC ACID [Concomitant]
     Active Substance: ASPIRIN
     Dosage: 1 DOSAGE FORMS DAILY;
     Dates: start: 20180226
  19. ORAMORPH [Concomitant]
     Active Substance: MORPHINE SULFATE
     Dosage: TO BE TAKEN THREE TIMES DAILY.
     Dates: start: 20171206
  20. FOSTAIR [Concomitant]
     Active Substance: BECLOMETHASONE\FORMOTEROL
     Dosage: 4 DOSAGE FORMS DAILY; PUFFS
     Dates: start: 20170120
  21. RELVAR ELLIPTA [Concomitant]
     Active Substance: FLUTICASONE FUROATE\VILANTEROL TRIFENATATE
     Dosage: 1 DOSAGE FORMS DAILY;
     Route: 055
     Dates: start: 20180713, end: 20180812
  22. QUININE [Concomitant]
     Active Substance: QUININE
     Dosage: 1 DOSAGE FORMS DAILY;
     Dates: start: 20170120
  23. FOLIC ACID. [Suspect]
     Active Substance: FOLIC ACID
     Dates: start: 20180822
  24. DUROGESIC DTRANS [Concomitant]
     Active Substance: FENTANYL
     Dosage: APPLY
     Route: 065
     Dates: start: 20180531, end: 20180630
  25. FUROSEMIDE. [Concomitant]
     Active Substance: FUROSEMIDE
     Dosage: 2 DOSAGE FORMS DAILY;
     Dates: start: 20180808
  26. PARACETAMOL [Concomitant]
     Active Substance: ACETAMINOPHEN
     Dosage: TAKE 1 OR 2 4 TIMES A DAY
     Route: 065
     Dates: start: 20180618, end: 20180716

REACTIONS (3)
  - Rash macular [Unknown]
  - Erythema [Unknown]
  - Swelling face [Recovered/Resolved]

NARRATIVE: CASE EVENT DATE: 20180822
